FAERS Safety Report 6405074-4 (Version None)
Quarter: 2009Q4

REPORT INFORMATION
  Report Type: 
  Country: None (occurrence: None)
  Receive Date: 20091016
  Receipt Date: 20091016
  Transmission Date: 20100525
  Serious: No
  Sender: FDA-Public Use
  Company Number: None

PATIENT
  Sex: Female
  Weight: 68.9467 kg

DRUGS (1)
  1. KLOR-CON M20 [Suspect]
     Dosage: KLORCON 20MEQ 2 BID PO
     Route: 048

REACTIONS (3)
  - HYPOKALAEMIA [None]
  - LOSS OF CONSCIOUSNESS [None]
  - PALPITATIONS [None]
